FAERS Safety Report 24171340 (Version 2)
Quarter: 2025Q3

REPORT INFORMATION
  Report Type: Spontaneous
  Country: US (occurrence: US)
  Receive Date: 20240805
  Receipt Date: 20250808
  Transmission Date: 20251021
  Serious: No
  Sender: RANBAXY
  Company Number: US-SUN PHARMACEUTICAL INDUSTRIES LTD-2024R1-459710

PATIENT
  Sex: Male

DRUGS (2)
  1. ODOMZO [Suspect]
     Active Substance: SONIDEGIB
     Indication: Basal cell carcinoma
     Dosage: 1 CAPSULE, QD
     Route: 048
  2. ODOMZO [Suspect]
     Active Substance: SONIDEGIB
     Dosage: 1 CAPSULE, QD
     Route: 048

REACTIONS (2)
  - Hypertension [Recovering/Resolving]
  - Product use issue [Unknown]
